FAERS Safety Report 10096009 (Version 1)
Quarter: 2014Q2

REPORT INFORMATION
  Report Type: Spontaneous
  Country: US (occurrence: US)
  Receive Date: 20140422
  Receipt Date: 20140422
  Transmission Date: 20141212
  Serious: Yes (Death)
  Sender: FDA-Public Use
  Company Number: US-GLAXOSMITHKLINE-A1070198A

PATIENT
  Age: 52 Year
  Sex: Female

DRUGS (5)
  1. TYKERB [Suspect]
     Indication: BREAST CANCER
     Dosage: 1250MG PER DAY
     Route: 048
     Dates: start: 20140113, end: 20140326
  2. XELODA [Concomitant]
  3. GABAPENTIN [Concomitant]
  4. AMITRIPTYLINE [Concomitant]
  5. ANASTROZOLE [Concomitant]

REACTIONS (1)
  - Death [Fatal]
